FAERS Safety Report 7586400-X (Version None)
Quarter: 2011Q3

REPORT INFORMATION
  Report Type: 
  Country: None (occurrence: None)
  Receive Date: 20110701
  Receipt Date: 20110623
  Transmission Date: 20111222
  Serious: Yes (Other)
  Sender: FDA-Public Use
  Company Number: A0933952A

PATIENT
  Age: 80 Year
  Sex: Female

DRUGS (4)
  1. AVANDIA [Suspect]
     Route: 065
  2. METFORMIN HCL [Concomitant]
  3. HYDROCODONE [Concomitant]
  4. GLIPIZIDE [Concomitant]

REACTIONS (1)
  - LOSS OF CONSCIOUSNESS [None]
